FAERS Safety Report 24339049 (Version 1)
Quarter: 2024Q3

REPORT INFORMATION
  Report Type: 
  Country: AU (occurrence: AU)
  Receive Date: 20240919
  Receipt Date: 20240919
  Transmission Date: 20241017
  Serious: Yes (Other)
  Sender: CELLTRION
  Company Number: AU-CELLTRION INC.-2024AU022085

PATIENT

DRUGS (4)
  1. ADALIMUMAB [Suspect]
     Active Substance: ADALIMUMAB
     Indication: Product used for unknown indication
  2. SECUKINUMAB [Suspect]
     Active Substance: SECUKINUMAB
     Indication: Product used for unknown indication
  3. UPADACITINIB HEMIHYDRATE [Suspect]
     Active Substance: UPADACITINIB HEMIHYDRATE
     Indication: Product used for unknown indication
  4. IXEKIZUMAB [Concomitant]
     Active Substance: IXEKIZUMAB

REACTIONS (10)
  - Glaucoma [Unknown]
  - Uveitis [Unknown]
  - Malignant melanoma in situ [Unknown]
  - Basal cell carcinoma [Unknown]
  - Escherichia bacteraemia [Unknown]
  - Acute myocardial infarction [Unknown]
  - Gastrooesophageal reflux disease [Unknown]
  - Hypertension [Unknown]
  - Orchitis [Unknown]
  - Psoriasis [Unknown]
